FAERS Safety Report 4488113-X (Version None)
Quarter: 2004Q4

REPORT INFORMATION
  Report Type: 
  Country: None (occurrence: None)
  Receive Date: 20041022
  Receipt Date: 20041018
  Transmission Date: 20050328
  Serious: Yes (Other)
  Sender: FDA-Public Use
  Company Number: GBWYE117918OCT04

PATIENT

DRUGS (2)
  1. EFFEXOR [Suspect]
  2. OLAZAPINE (OLANZAPINE) [Suspect]

REACTIONS (2)
  - DRUG INTERACTION [None]
  - NEUROLEPTIC MALIGNANT SYNDROME [None]
